FAERS Safety Report 7660981-X (Version None)
Quarter: 2011Q3

REPORT INFORMATION
  Report Type: 
  Country: None (occurrence: None)
  Receive Date: 20110805
  Receipt Date: 20101006
  Transmission Date: 20111222
  Serious: No
  Sender: FDA-Public Use
  Company Number: US-ABBOTT-10P-163-0677164-00

PATIENT
  Sex: Female

DRUGS (1)
  1. NIASPAN [Suspect]
     Indication: PRODUCT USED FOR UNKNOWN INDICATION
     Dosage: 1 IN THE MORNING + 1 AT NIGHT
     Dates: start: 20100920

REACTIONS (5)
  - DYSGEUSIA [None]
  - TONGUE DISCOLOURATION [None]
  - TONGUE DRY [None]
  - NAUSEA [None]
  - WEIGHT INCREASED [None]
